FAERS Safety Report 11823574 (Version 1)
Quarter: 2015Q4

REPORT INFORMATION
  Report Type: Spontaneous
  Country: GB (occurrence: GB)
  Receive Date: 20151210
  Receipt Date: 20151210
  Transmission Date: 20160305
  Serious: Yes (Other)
  Sender: FDA-Public Use
  Company Number: GB-PFIZER INC-2015424227

PATIENT
  Age: 24 Year
  Sex: Male

DRUGS (1)
  1. SULFASALAZINE. [Suspect]
     Active Substance: SULFASALAZINE
     Indication: COLITIS ULCERATIVE
     Dosage: 1 G, 2X/DAY
     Dates: start: 1988, end: 1994

REACTIONS (2)
  - Sjogren^s syndrome [Recovering/Resolving]
  - Autoimmune disorder [Recovering/Resolving]

NARRATIVE: CASE EVENT DATE: 199407
